FAERS Safety Report 25526418 (Version 2)
Quarter: 2025Q3

REPORT INFORMATION
  Report Type: Spontaneous
  Country: JP (occurrence: JP)
  Receive Date: 20250707
  Receipt Date: 20250717
  Transmission Date: 20251021
  Serious: No
  Sender: BAUSCH AND LOMB
  Company Number: JP-BAUSCH-BH-2025-014356

PATIENT
  Age: 34 Year
  Sex: Female

DRUGS (7)
  1. BUDESONIDE [Suspect]
     Active Substance: BUDESONIDE
     Indication: Colitis ulcerative
     Dates: start: 20220917, end: 20221205
  2. BUDESONIDE [Suspect]
     Active Substance: BUDESONIDE
     Dates: start: 20231120, end: 20240105
  3. BUDESONIDE [Suspect]
     Active Substance: BUDESONIDE
     Dates: end: 20240415
  4. CAROTEGRAST METHYL [Suspect]
     Active Substance: CAROTEGRAST METHYL
     Indication: Colitis ulcerative
     Route: 048
     Dates: start: 20220530
  5. CAROTEGRAST METHYL [Suspect]
     Active Substance: CAROTEGRAST METHYL
     Route: 065
     Dates: end: 20240415
  6. CAROTEGRAST METHYL [Suspect]
     Active Substance: CAROTEGRAST METHYL
     Route: 048
     Dates: start: 20241204, end: 20250217
  7. MESALAMINE [Concomitant]
     Active Substance: MESALAMINE
     Indication: Product used for unknown indication
     Dates: start: 20240105

REACTIONS (1)
  - Cervical dysplasia [Unknown]

NARRATIVE: CASE EVENT DATE: 20240101
